FAERS Safety Report 7249642-9 (Version None)
Quarter: 2011Q1

REPORT INFORMATION
  Report Type: 
  Country: None (occurrence: None)
  Receive Date: 20110128
  Receipt Date: 20101216
  Transmission Date: 20110831
  Serious: Yes (Other)
  Sender: FDA-Public Use
  Company Number: US-BAYER-201021493NA

PATIENT
  Sex: Female

DRUGS (2)
  1. YASMIN [Suspect]
     Indication: PRODUCT USED FOR UNKNOWN INDICATION
     Dosage: AS USED DOSE: UNK
     Route: 048
     Dates: start: 20080101
  2. YAZ [Suspect]
     Indication: PRODUCT USED FOR UNKNOWN INDICATION
     Dosage: AS USED DOSE: UNK
     Route: 048
     Dates: start: 20080101

REACTIONS (1)
  - DEEP VEIN THROMBOSIS [None]
